FAERS Safety Report 20756005 (Version 3)
Quarter: 2022Q3

REPORT INFORMATION
  Report Type: Spontaneous
  Country: US (occurrence: US)
  Receive Date: 20220427
  Receipt Date: 20220728
  Transmission Date: 20221026
  Serious: No
  Sender: FDA-Public Use
  Company Number: US-AVET LIFESCIENCES LTD-2022-AVET-000070

PATIENT

DRUGS (4)
  1. ACYCLOVIR [Suspect]
     Active Substance: ACYCLOVIR
     Indication: Genital herpes
     Dosage: 1 TABLET A DAY (HALF IN MORNING AND  IMPRINT CODE: HP 227HALF AT NIGHT)
     Route: 065
     Dates: start: 20210602
  2. GABAPENTIN [Concomitant]
     Active Substance: GABAPENTIN
     Dosage: 100 MILLIGRAM, QID
     Route: 065
  3. CELEBREX [Concomitant]
     Active Substance: CELECOXIB
     Dosage: UNK
     Route: 065
  4. RABEPRAZOLE [Concomitant]
     Active Substance: RABEPRAZOLE
     Dosage: 1 TABLET A DAY,
     Route: 065

REACTIONS (2)
  - Pain in extremity [Recovered/Resolved]
  - Fatigue [Recovered/Resolved]
